FAERS Safety Report 26187842 (Version 1)
Quarter: 2025Q4

REPORT INFORMATION
  Report Type: Spontaneous
  Country: US (occurrence: US)
  Receive Date: 20251222
  Receipt Date: 20251222
  Transmission Date: 20260117
  Serious: No
  Sender: BRISTOL-MYERS SQUIBB COMPANY
  Company Number: US-BRISTOL-MYERS SQUIBB COMPANY-2025-171155

PATIENT
  Age: 75 Year
  Sex: Male

DRUGS (2)
  1. POMALYST [Interacting]
     Active Substance: POMALIDOMIDE
     Indication: Product used for unknown indication
     Route: 048
  2. FLUVOXAMINE [Interacting]
     Active Substance: FLUVOXAMINE
     Indication: Product used for unknown indication

REACTIONS (4)
  - Pruritus [Unknown]
  - Lethargy [Unknown]
  - Fatigue [Unknown]
  - Drug interaction [Unknown]
